FAERS Safety Report 24036082 (Version 1)
Quarter: 2024Q3

REPORT INFORMATION
  Report Type: Spontaneous
  Country: CA (occurrence: CA)
  Receive Date: 20240701
  Receipt Date: 20240701
  Transmission Date: 20241016
  Serious: Yes (Life-Threatening, Disabling)
  Sender: TEVA
  Company Number: CA-TEVA-VS-3213016

PATIENT
  Age: 44 Year
  Sex: Female
  Weight: 63 kg

DRUGS (1)
  1. VENLAFAXINE [Suspect]
     Active Substance: VENLAFAXINE HYDROCHLORIDE
     Indication: Fatigue
     Dosage: DOSAGE FORM: CAPSULE, EXTENDED RELEASE
     Route: 048

REACTIONS (9)
  - Hallucination [Recovered/Resolved]
  - Anorgasmia [Recovered/Resolved]
  - Depressed mood [Recovered/Resolved]
  - Impulsive behaviour [Recovered/Resolved]
  - Insomnia [Recovered/Resolved]
  - Social avoidant behaviour [Recovered/Resolved]
  - Somnolence [Recovered/Resolved]
  - Suicidal ideation [Recovered/Resolved]
  - Withdrawal syndrome [Recovered/Resolved]
